FAERS Safety Report 21675214 (Version 1)
Quarter: 2022Q4

REPORT INFORMATION
  Report Type: Spontaneous
  Country: US (occurrence: US)
  Receive Date: 20221202
  Receipt Date: 20221202
  Transmission Date: 20230112
  Serious: No
  Sender: FDA-Public Use
  Company Number: US-SA-SAC20221130001335

PATIENT
  Age: 71 Year
  Sex: Female

DRUGS (13)
  1. DUPIXENT [Suspect]
     Active Substance: DUPILUMAB
     Indication: Psoriasis
     Dosage: 300 MG, QOW
     Route: 058
     Dates: start: 20220616
  2. FLUOCINONIDE [Concomitant]
     Active Substance: FLUOCINONIDE
  3. OMEPRAZOLE [Concomitant]
     Active Substance: OMEPRAZOLE
     Indication: Gastrooesophageal reflux disease
  4. OMEPRAZOLE [Concomitant]
     Active Substance: OMEPRAZOLE
     Indication: Oesophagitis
  5. OTEZLA [Concomitant]
     Active Substance: APREMILAST
  6. OXYBUTYNIN [Concomitant]
     Active Substance: OXYBUTYNIN
  7. PHENTERMINE [Concomitant]
     Active Substance: PHENTERMINE
  8. PREDNISOLONE [Concomitant]
     Active Substance: PREDNISOLONE
  9. TEMAZEPAM [Concomitant]
     Active Substance: TEMAZEPAM
  10. VITAMINS NOS [Concomitant]
     Active Substance: VITAMINS
  11. HYDROCORTISONE ACETATE [Concomitant]
     Active Substance: HYDROCORTISONE ACETATE
  12. METHYLPREDNISOLONE [Concomitant]
     Active Substance: METHYLPREDNISOLONE
  13. TRIAMCINOLONE [Concomitant]
     Active Substance: TRIAMCINOLONE

REACTIONS (2)
  - Erythema [Recovered/Resolved]
  - Product use in unapproved indication [Unknown]

NARRATIVE: CASE EVENT DATE: 20220616
